FAERS Safety Report 17293753 (Version 1)
Quarter: 2020Q1

REPORT INFORMATION
  Report Type: Spontaneous
  Country: US (occurrence: US)
  Receive Date: 20200120
  Receipt Date: 20200120
  Transmission Date: 20200409
  Serious: Yes (Disabling)
  Sender: FDA-Public Use
  Company Number: None

PATIENT
  Age: 62 Year
  Sex: Female
  Weight: 90 kg

DRUGS (1)
  1. DULOXETINE HCIEC 20 MG CAP [Suspect]
     Active Substance: DULOXETINE
     Indication: MIGRAINE
     Dosage: ?          QUANTITY:1 CAPSULE(S);?
     Route: 048

REACTIONS (2)
  - Trigeminal neuralgia [None]
  - Condition aggravated [None]

NARRATIVE: CASE EVENT DATE: 20190824
